FAERS Safety Report 8010958-X (Version None)
Quarter: 2011Q4

REPORT INFORMATION
  Report Type: 
  Country: None (occurrence: None)
  Receive Date: 20111228
  Receipt Date: 20111222
  Transmission Date: 20120403
  Serious: Yes (Death)
  Sender: FDA-Public Use
  Company Number: US-PFIZER INC-2011311914

PATIENT
  Sex: Male

DRUGS (17)
  1. EVEROLIMUS [Concomitant]
     Dosage: 2.5 MG, UNK
     Dates: start: 20111101
  2. HUMIRA [Concomitant]
     Dosage: 40MG/0.8
  3. METOPROLOL TARTRATE [Concomitant]
     Dosage: 25 MG, UNK
  4. POTASSIUM [Concomitant]
     Dosage: 75 MG, UNK
  5. DITROPAN [Concomitant]
     Dosage: 5 MG, UNK
  6. CARISOPRODOL [Concomitant]
     Dosage: 250 MG, UNK
  7. HUMALOG [Concomitant]
     Dosage: 50/50
  8. ACETYLSALICYLIC ACID [Concomitant]
     Dosage: 81 MG, UNK
  9. PROCHLORPERAZINE [Concomitant]
     Dosage: 10 MG, UNK
  10. PRILOSEC [Concomitant]
     Dosage: 10 MG, UNK
  11. SUTENT [Suspect]
     Dosage: 50 MG EVERY DAY FOR 2 WEEKS ON, 1 WEEK OFF
     Route: 048
     Dates: start: 20101101, end: 20110701
  12. ONDANSETRON [Concomitant]
     Dosage: 4 MG, UNK
  13. GABAPENTIN [Concomitant]
     Dosage: 100 MG, UNK
  14. OXYCONTIN [Concomitant]
     Dosage: 10 MG, UNK
  15. PAZOPANIB [Concomitant]
     Dosage: UNK
  16. LIPITOR [Concomitant]
     Dosage: 10 MG, UNK
  17. IRON [Concomitant]
     Dosage: 18 MG, UNK

REACTIONS (2)
  - GENERAL PHYSICAL HEALTH DETERIORATION [None]
  - DEATH [None]
